FAERS Safety Report 9182256 (Version 1)
Quarter: 2013Q1

REPORT INFORMATION
  Report Type: Spontaneous
  Country: US (occurrence: US)
  Receive Date: 20130322
  Receipt Date: 20130322
  Transmission Date: 20140127
  Serious: No
  Sender: FDA-Public Use
  Company Number: US-BAYER-2013-036398

PATIENT
  Age: 74 Year
  Sex: Female
  Weight: 111.57 kg

DRUGS (2)
  1. ALEVE CAPLET/TABLET,MIDOL EXTENDED RELIEF CAPLET [Suspect]
     Dosage: 1 DF, ONCE
     Route: 048
     Dates: start: 20130317, end: 20130318
  2. MULTIVITAMINS [Concomitant]

REACTIONS (1)
  - Abdominal pain upper [Recovered/Resolved]
